FAERS Safety Report 11575533 (Version 2)
Quarter: 2015Q4

REPORT INFORMATION
  Report Type: Spontaneous
  Country: US (occurrence: US)
  Receive Date: 20150916
  Receipt Date: 20151027
  Transmission Date: 20160304
  Serious: No
  Sender: FDA-Public Use
  Company Number: US-ELI_LILLY_AND_COMPANY-US200911006635

PATIENT
  Sex: Female
  Weight: 58.96 kg

DRUGS (7)
  1. ASA [Concomitant]
     Active Substance: ASPIRIN
  2. ESTRADIOL. [Concomitant]
     Active Substance: ESTRADIOL
     Dosage: 1 MG, UNK
  3. ADVAIR HFA [Concomitant]
     Active Substance: FLUTICASONE PROPIONATE\SALMETEROL XINAFOATE
  4. FORTEO [Suspect]
     Active Substance: TERIPARATIDE
     Indication: OSTEOPOROSIS
     Dosage: 20 UG, DAILY (1/D)
     Dates: start: 20090506
  5. VITAMIN B [Concomitant]
     Active Substance: VITAMIN B
  6. OXYGEN. [Concomitant]
     Active Substance: OXYGEN
     Dosage: UNK, EACH EVENING
  7. CARVEDILOL. [Concomitant]
     Active Substance: CARVEDILOL
     Dosage: 6.25 MG, UNK

REACTIONS (4)
  - Varicose vein [Unknown]
  - Pain in extremity [Unknown]
  - Peripheral swelling [Unknown]
  - Muscle spasms [Recovered/Resolved]

NARRATIVE: CASE EVENT DATE: 2009
